FAERS Safety Report 8816829 (Version 1)
Quarter: 2012Q4

REPORT INFORMATION
  Report Type: Spontaneous
  Country: US (occurrence: None)
  Receive Date: 20121001
  Receipt Date: 20121001
  Transmission Date: 20130627
  Serious: Yes (Other)
  Sender: FDA-Public Use
  Company Number: TPA2012A06955

PATIENT
  Age: 61 Year
  Sex: Female

DRUGS (1)
  1. PREVACID [Suspect]

REACTIONS (3)
  - Shoulder operation [None]
  - Carpal tunnel syndrome [None]
  - Ulnar tunnel syndrome [None]
